FAERS Safety Report 8620510-0 (Version None)
Quarter: 2012Q3

REPORT INFORMATION
  Report Type: 
  Country: None (occurrence: None)
  Receive Date: 20120824
  Receipt Date: 20120813
  Transmission Date: 20120928
  Serious: Yes (Death, Hospitalization)
  Sender: FDA-Public Use
  Company Number: SE-BRISTOL-MYERS SQUIBB COMPANY-16874521

PATIENT
  Age: 64 Year
  Sex: Male

DRUGS (4)
  1. CISPLATIN [Suspect]
     Indication: HEAD AND NECK CANCER
  2. DOCETAXEL [Suspect]
     Indication: HEAD AND NECK CANCER
  3. FLUOROURACIL [Suspect]
     Indication: HEAD AND NECK CANCER
  4. CETUXIMAB [Suspect]
     Indication: HEAD AND NECK CANCER
     Dates: start: 20120601, end: 20120701

REACTIONS (1)
  - PULMONARY FIBROSIS [None]
